FAERS Safety Report 9903157 (Version 4)
Quarter: 2015Q3

REPORT INFORMATION
  Report Type: Report from Study
  Country: BR (occurrence: BR)
  Receive Date: 20140217
  Receipt Date: 20150908
  Transmission Date: 20151125
  Serious: Yes (Other)
  Sender: FDA-Public Use
  Company Number: PHHY2014BR018708

PATIENT
  Age: 70 Year
  Sex: Female
  Weight: 66 kg

DRUGS (14)
  1. DIOVAN HCT [Suspect]
     Active Substance: HYDROCHLOROTHIAZIDE\VALSARTAN
     Indication: BLOOD PRESSURE FLUCTUATION
  2. INFLUENZA VACCIN [Suspect]
     Active Substance: INFLUENZA VIRUS VACCINE
     Indication: INFLUENZA
     Dosage: 1 DF, UNK
     Route: 065
     Dates: end: 201507
  3. SIMVASTATIN. [Concomitant]
     Active Substance: SIMVASTATIN
     Indication: BLOOD TRIGLYCERIDES ABNORMAL
     Dosage: 40 MG, QD (MORE THAN 10 YEARS)
     Route: 048
  4. METFORMIN [Concomitant]
     Active Substance: METFORMIN HYDROCHLORIDE
     Indication: DIABETES MELLITUS
     Dosage: 2 DF (850 MG), QD (MORE THAN 20 YEARS)
     Route: 048
  5. NOVOLIN [Concomitant]
     Active Substance: INSULIN HUMAN
     Indication: DIABETES MELLITUS
     Route: 065
  6. PROZA [Concomitant]
     Indication: BONE DENSITY INCREASED
     Dosage: 1 DF (0.5MG+2MG), QD (3 YEARS AGO)
     Route: 048
  7. OMEPRAZOLE. [Concomitant]
     Active Substance: OMEPRAZOLE
     Indication: GASTRIC ULCER
     Dosage: 20 MG, QD
     Route: 048
  8. INSULIN [Concomitant]
     Active Substance: INSULIN NOS
     Indication: PRODUCT USED FOR UNKNOWN INDICATION
     Route: 065
  9. DIOVAN HCT [Suspect]
     Active Substance: HYDROCHLOROTHIAZIDE\VALSARTAN
     Indication: HYPERTENSION
     Dosage: 1 DF (VALSARTAN 160 MG /HYDROCHOLORTHIAZIDE 12.5MG), QD (MORNING)
     Route: 048
     Dates: start: 2006
  10. INSULIN NPH//INSULIN ISOPHANE BOVINE [Concomitant]
     Active Substance: INSULIN BEEF
     Indication: DIABETES MELLITUS
     Dosage: 1 DF (1.5 TO 2 UNITS), QD (2 YEARS AGO)
     Route: 058
  11. TILEX [Concomitant]
     Indication: PAIN
     Dosage: 30 MG, QD (MORE THAN 20 YEARS)
     Route: 048
  12. SIMVASTATIN. [Concomitant]
     Active Substance: SIMVASTATIN
     Indication: BLOOD CHOLESTEROL ABNORMAL
  13. CALCIUM [Concomitant]
     Active Substance: CALCIUM
     Indication: OSTEOPOROSIS
     Dosage: 500 OT, UNK
     Route: 065
  14. BROMAZEPAM [Concomitant]
     Active Substance: BROMAZEPAM
     Indication: FEELING OF RELAXATION
     Dosage: 6 MG, QD (MORE THAN 20 YEARS)
     Route: 048

REACTIONS (26)
  - Pain in extremity [Recovering/Resolving]
  - Anaemia [Unknown]
  - Pain [Recovering/Resolving]
  - Hypokinesia [Unknown]
  - Blood pressure increased [Recovering/Resolving]
  - Neurological symptom [Recovered/Resolved]
  - Nasopharyngitis [Recovering/Resolving]
  - Musculoskeletal discomfort [Recovering/Resolving]
  - Cold sweat [Recovering/Resolving]
  - Headache [Recovering/Resolving]
  - Spinal cord compression [Recovering/Resolving]
  - Deafness [Unknown]
  - Syncope [Recovering/Resolving]
  - Fall [Recovering/Resolving]
  - Head injury [Recovering/Resolving]
  - Malaise [Recovering/Resolving]
  - Nodule [Unknown]
  - Blood glucose increased [Recovering/Resolving]
  - Pulmonary haemorrhage [Unknown]
  - Joint dislocation [Recovering/Resolving]
  - Accident [Unknown]
  - Sciatica [Recovering/Resolving]
  - Tooth loss [Recovering/Resolving]
  - Rhinorrhoea [Recovering/Resolving]
  - Cough [Recovering/Resolving]
  - Screaming [Recovering/Resolving]

NARRATIVE: CASE EVENT DATE: 201305
